FAERS Safety Report 9029722 (Version 5)
Quarter: 2014Q3

REPORT INFORMATION
  Report Type: Spontaneous
  Country: US (occurrence: US)
  Receive Date: 20130124
  Receipt Date: 20140704
  Transmission Date: 20150326
  Serious: No
  Sender: FDA-Public Use
  Company Number: US-009507513-1301USA010902

PATIENT
  Sex: Male
  Weight: 79.82 kg

DRUGS (1)
  1. PROPECIA [Suspect]
     Active Substance: FINASTERIDE
     Indication: ALOPECIA
     Dosage: 1 MG, QD
     Route: 048
     Dates: start: 20090223, end: 201008

REACTIONS (7)
  - Haemorrhoids [Unknown]
  - Eczema [Unknown]
  - Erectile dysfunction [Not Recovered/Not Resolved]
  - Cyst [Recovering/Resolving]
  - Libido decreased [Unknown]
  - Abscess drainage [Recovering/Resolving]
  - Sexual dysfunction [Not Recovered/Not Resolved]

NARRATIVE: CASE EVENT DATE: 20091005
